FAERS Safety Report 24110183 (Version 1)
Quarter: 2024Q3

REPORT INFORMATION
  Report Type: Spontaneous
  Country: US (occurrence: None)
  Receive Date: 20240717
  Receipt Date: 20240717
  Transmission Date: 20241016
  Serious: Yes (Other)
  Sender: Public
  Company Number: None

PATIENT
  Age: 31 Year
  Sex: Female
  Weight: 67.5 kg

DRUGS (7)
  1. LETROZOLE [Suspect]
     Active Substance: LETROZOLE
     Indication: Breast cancer
     Dosage: 1 TABLET DAILY ORAL?
     Route: 048
     Dates: start: 20240715, end: 20240717
  2. KETOTIFEN [Concomitant]
     Active Substance: KETOTIFEN
  3. Cromolyn Fexofenadine [Concomitant]
  4. FAMOTIDINE [Concomitant]
     Active Substance: FAMOTIDINE
  5. LUPRON [Concomitant]
     Active Substance: LEUPROLIDE ACETATE
  6. MAGNESIUM CITRATE [Concomitant]
     Active Substance: MAGNESIUM CITRATE
  7. MAGNESIUM BISGLYCINATE [Concomitant]

REACTIONS (6)
  - Gastrooesophageal reflux disease [None]
  - Dyspnoea [None]
  - Diarrhoea [None]
  - Anxiety [None]
  - Allergic reaction to excipient [None]
  - Contraindicated product administered [None]

NARRATIVE: CASE EVENT DATE: 20240717
